FAERS Safety Report 9275222 (Version 3)
Quarter: 2013Q4

REPORT INFORMATION
  Report Type: Spontaneous
  Country: DE (occurrence: DE)
  Receive Date: 20130506
  Receipt Date: 20131108
  Transmission Date: 20140711
  Serious: Yes (Hospitalization)
  Sender: FDA-Public Use
  Company Number: DE-BRACCO-001373

PATIENT
  Age: 47 Year
  Sex: Female
  Weight: 65 kg

DRUGS (1)
  1. PROHANCE [Suspect]
     Indication: ANGIOGRAM
     Route: 042
     Dates: start: 20130416, end: 20130416

REACTIONS (7)
  - Hypotension [Recovered/Resolved]
  - Muscle twitching [Unknown]
  - Cognitive disorder [Unknown]
  - Pain [Unknown]
  - Tremor [Unknown]
  - Diarrhoea [Unknown]
  - Nausea [Unknown]
